FAERS Safety Report 7636889-2 (Version None)
Quarter: 2011Q3

REPORT INFORMATION
  Report Type: 
  Country: None (occurrence: None)
  Receive Date: 20110726
  Receipt Date: 20110614
  Transmission Date: 20111222
  Serious: No
  Sender: FDA-Public Use
  Company Number: US-BAYER-2011-051527

PATIENT
  Sex: Female

DRUGS (2)
  1. ALEVE (CAPLET) [Suspect]
     Indication: NECK PAIN
  2. ALEVE (CAPLET) [Suspect]
     Indication: BACK PAIN
     Dosage: BOTTLE COUNT 200 CT
     Route: 048

REACTIONS (2)
  - BACK PAIN [None]
  - NECK PAIN [None]
